FAERS Safety Report 5015487-3 (Version None)
Quarter: 2006Q2

REPORT INFORMATION
  Report Type: 
  Country: None (occurrence: None)
  Receive Date: 20060530
  Receipt Date: 20060530
  Transmission Date: 20061013
  Serious: Yes (Other)
  Sender: FDA-Public Use
  Company Number: None

PATIENT
  Age: 72 Year
  Sex: Male
  Weight: 83.5 kg

DRUGS (10)
  1. HYTRIN [Suspect]
  2. METOPROLOL SUCCINATE [Concomitant]
  3. OMEPRAZOLE [Concomitant]
  4. SIMVASTATIN [Concomitant]
  5. NITROGLYCERIN [Concomitant]
  6. TERAZOSIN HCL [Concomitant]
  7. DOCUSATE NA [Concomitant]
  8. HYDROCODONE 5/ACETAMINOPHEN [Concomitant]
  9. LISINOPRIL [Concomitant]
  10. FLUNISOLIDE ORAL INH [Concomitant]

REACTIONS (1)
  - PRIAPISM [None]
